FAERS Safety Report 6600821-0 (Version None)
Quarter: 2010Q1

REPORT INFORMATION
  Report Type: 
  Country: None (occurrence: None)
  Receive Date: 20100225
  Receipt Date: 20100222
  Transmission Date: 20100710
  Serious: Yes (Hospitalization, Other)
  Sender: FDA-Public Use
  Company Number: US-ASTRAZENECA-2007UW05054

PATIENT
  Age: 725 Month
  Sex: Female
  Weight: 99.3 kg

DRUGS (15)
  1. SEROQUEL [Suspect]
     Indication: SCHIZOPHRENIA
     Dosage: 25MG-500MG AT NIGHT
     Route: 048
     Dates: start: 20060614, end: 20080409
  2. SEROQUEL [Suspect]
     Dosage: 200-300 MG, AT BEDTIME
     Route: 048
     Dates: start: 20070110
  3. SEROQUEL [Suspect]
     Dosage: 400-500 MG
     Route: 048
  4. ABILIFY [Concomitant]
     Dosage: 5-15 MG QD
     Dates: start: 20070530
  5. RISPERDAL [Concomitant]
     Dosage: 2-3 MG QHS
     Route: 048
     Dates: start: 20030101, end: 20060719
  6. RISPERDAL [Concomitant]
     Dosage: 0.5MG-3MG
     Route: 048
     Dates: start: 20030116
  7. STELAZINE [Concomitant]
     Dosage: 2 MG BID, THEN DECREASE TO 2 MG QOD
     Dates: start: 20020801, end: 20030601
  8. ZOLOFT [Concomitant]
     Dosage: 100MG-200MG AT NIGHT
     Dates: start: 19880101
  9. ZOLOFT [Concomitant]
     Route: 048
     Dates: start: 20060208
  10. HALDOL [Concomitant]
     Dosage: EARLY 1990, 1991
  11. SERTRALINE HCL [Concomitant]
     Route: 048
     Dates: start: 20060823
  12. TOPROL-XL [Concomitant]
     Dosage: 100 MG TABLET 1TABLET TWICE A DAY, 100 MG 2 TABLETS DAILY
     Route: 048
     Dates: start: 20060817
  13. IMIPRAMINE HCL [Concomitant]
     Route: 048
     Dates: start: 20061114
  14. TRIFLUOPERAZINE [Concomitant]
     Route: 048
     Dates: start: 20030116
  15. TRAZODONE [Concomitant]
     Dates: start: 20080101

REACTIONS (10)
  - ACUTE RESPIRATORY FAILURE [None]
  - BLISTER [None]
  - CARDIAC FAILURE CONGESTIVE [None]
  - CHRONIC OBSTRUCTIVE PULMONARY DISEASE [None]
  - DYSPNOEA [None]
  - INFECTIVE EXACERBATION OF CHRONIC OBSTRUCTIVE AIRWAYS DISEASE [None]
  - MYOCARDIAL INFARCTION [None]
  - PNEUMONIA [None]
  - PULMONARY EMBOLISM [None]
  - TYPE 2 DIABETES MELLITUS [None]
